FAERS Safety Report 7009629-8 (Version None)
Quarter: 2010Q3

REPORT INFORMATION
  Report Type: 
  Country: None (occurrence: None)
  Receive Date: 20100923
  Receipt Date: 20100913
  Transmission Date: 20110219
  Serious: Yes (Other)
  Sender: FDA-Public Use
  Company Number: PHHY2010JP46896

PATIENT
  Age: 51 Year
  Sex: Male
  Weight: 70 kg

DRUGS (9)
  1. AFINITOR [Suspect]
     Indication: RENAL CELL CARCINOMA
     Dosage: 10 MG/DAY
     Route: 048
     Dates: start: 20100628, end: 20100702
  2. SUNITINIB MALATE [Concomitant]
     Dosage: 37.5 MG
     Route: 048
     Dates: start: 20100118, end: 20100604
  3. BEZATOL - SLOW RELEASE [Concomitant]
     Indication: METASTASES TO THORAX
     Dosage: 400 MG
     Route: 048
     Dates: start: 20100625, end: 20100702
  4. ALLELOCK [Concomitant]
     Indication: PROPHYLAXIS
     Dosage: 5 MG
     Route: 048
     Dates: start: 20100709
  5. ATARAX [Concomitant]
     Indication: PROPHYLAXIS
     Dosage: 10 MG
     Route: 048
     Dates: start: 20100709
  6. MYSER [Concomitant]
     Indication: PROPHYLAXIS
     Dosage: 5 GM
     Route: 061
     Dates: start: 20100709
  7. MUCOSTA [Concomitant]
     Indication: PROPHYLAXIS
     Dosage: 300 MG
     Route: 048
     Dates: start: 20100714, end: 20100717
  8. GABAPENTIN [Concomitant]
     Dosage: 600 MG
     Route: 048
     Dates: start: 20100224
  9. CELECOXIB [Concomitant]
     Dosage: 200 MG
     Route: 048
     Dates: start: 20100308

REACTIONS (1)
  - PERICORONITIS [None]
